FAERS Safety Report 4837199-9 (Version None)
Quarter: 2005Q4

REPORT INFORMATION
  Report Type: 
  Country: None (occurrence: None)
  Receive Date: 20051122
  Receipt Date: 20051111
  Transmission Date: 20060501
  Serious: Yes (Hospitalization, Other)
  Sender: FDA-Public Use
  Company Number: KII-2005-0019646

PATIENT
  Age: 49 Year
  Sex: Female

DRUGS (9)
  1. MORPHINE SULFATE [Suspect]
     Dosage: ORAL
     Route: 048
  2. ACETAMINOPHEN AND HYDROCODONE BITARTRATE [Suspect]
     Dosage: ORAL
     Route: 048
  3. TRAZODONE HCL [Suspect]
     Dosage: ORAL
     Route: 048
  4. PROPOXYPHENE HCL AND ACETAMINOPHEN [Suspect]
     Route: 048
  5. CARISOPRODOL [Suspect]
     Dosage: ORAL
     Route: 048
  6. BENZODIAZEPINE DERIVATIVES [Suspect]
     Dosage: ORAL
     Route: 048
  7. CAFFEINE (CAFFEINE) [Suspect]
     Dosage: ORAL
     Route: 048
  8. DECONGESTANT [Suspect]
     Dosage: ORAL
     Route: 048
  9. ASPIRIN [Suspect]

REACTIONS (3)
  - BLOOD PRESSURE DIASTOLIC INCREASED [None]
  - MENTAL STATUS CHANGES [None]
  - POLYSUBSTANCE ABUSE [None]
